FAERS Safety Report 12171091 (Version 1)
Quarter: 2016Q1

REPORT INFORMATION
  Report Type: Spontaneous
  Country: US (occurrence: None)
  Receive Date: 20160310
  Receipt Date: 20160310
  Transmission Date: 20160526
  Serious: Yes (Other)
  Sender: FDA-Public Use
  Company Number: None

PATIENT
  Age: 22 Year
  Sex: Male
  Weight: 0 kg

DRUGS (1)
  1. GLEEVEC [Suspect]
     Active Substance: IMATINIB MESYLATE
     Dosage: ORAL 047 400 ORAL ONCE DAILY
     Route: 048

REACTIONS (4)
  - Cough [None]
  - Sneezing [None]
  - Pulmonary congestion [None]
  - Pain [None]

NARRATIVE: CASE EVENT DATE: 20160308
